FAERS Safety Report 10159597 (Version 1)
Quarter: 2014Q2

REPORT INFORMATION
  Report Type: Spontaneous
  Country: DE (occurrence: None)
  Receive Date: 20140506
  Receipt Date: 20140506
  Transmission Date: 20141212
  Serious: Yes (Other)
  Sender: FDA-Public Use
  Company Number: AUR-APL-2014-05246

PATIENT
  Age: 49 Year
  Sex: Male

DRUGS (2)
  1. METFORMIN (METFORMIN) [Suspect]
     Indication: DIABETES MELLITUS
  2. TREVILOR RETARD [Suspect]
     Indication: PRODUCT USED FOR UNKNOWN INDICATION

REACTIONS (5)
  - Renal failure acute [None]
  - Toxicity to various agents [None]
  - Lactic acidosis [None]
  - Dialysis [None]
  - Rhabdomyolysis [None]
